FAERS Safety Report 6439869-8 (Version None)
Quarter: 2009Q4

REPORT INFORMATION
  Report Type: 
  Country: None (occurrence: None)
  Receive Date: 20091113
  Receipt Date: 20091104
  Transmission Date: 20100525
  Serious: Yes (Other)
  Sender: FDA-Public Use
  Company Number: JP-BRISTOL-MYERS SQUIBB COMPANY-14855217

PATIENT

DRUGS (2)
  1. ABILIFY [Suspect]
     Route: 048
  2. CLARITH [Suspect]
     Route: 048

REACTIONS (2)
  - DELUSION [None]
  - HALLUCINATION [None]
